FAERS Safety Report 7033240-6 (Version None)
Quarter: 2010Q4

REPORT INFORMATION
  Report Type: 
  Country: None (occurrence: None)
  Receive Date: 20101004
  Receipt Date: 20100917
  Transmission Date: 20110411
  Serious: Yes (Other)
  Sender: FDA-Public Use
  Company Number: 2010P1001257

PATIENT
  Age: 36 Year
  Sex: Female
  Weight: 78.0187 kg

DRUGS (13)
  1. FENTANYL-100 [Suspect]
     Indication: PAIN MANAGEMENT
     Dosage: 75 MCG/HR; Q72H; TDER
     Route: 062
     Dates: start: 20100601
  2. METFORMIN (NO PREF. NAME) [Suspect]
     Dosage: 500 MG; BID; PO
     Route: 048
     Dates: start: 20100801
  3. SEROQUEL [Concomitant]
  4. ROZEREM [Concomitant]
  5. XANAX [Concomitant]
  6. VISTARIL [Concomitant]
  7. KLONOPIN [Concomitant]
  8. FLEXERIL [Concomitant]
  9. PERCOCET [Concomitant]
  10. VICODIN [Concomitant]
  11. OXYCODONE [Concomitant]
  12. MIRALAX [Concomitant]
  13. SENOKOT [Concomitant]

REACTIONS (14)
  - ABASIA [None]
  - BLOOD CHOLESTEROL INCREASED [None]
  - BLOOD GLUCOSE INCREASED [None]
  - CONSTIPATION [None]
  - DERMATITIS CONTACT [None]
  - DIABETES MELLITUS [None]
  - DRUG INEFFECTIVE [None]
  - HEART RATE DECREASED [None]
  - HEART RATE INCREASED [None]
  - HYPERTENSION [None]
  - HYPOAESTHESIA [None]
  - PROCEDURAL HYPERTENSION [None]
  - ROAD TRAFFIC ACCIDENT [None]
  - WEIGHT DECREASED [None]
